FAERS Safety Report 15669127 (Version 4)
Quarter: 2020Q3

REPORT INFORMATION
  Report Type: Other
  Country: US (occurrence: US)
  Receive Date: 20181129
  Receipt Date: 20200903
  Transmission Date: 20201102
  Serious: Yes (Hospitalization)
  Sender: FDA-Public Use
  Company Number: US-ROCHE-2218556

PATIENT
  Sex: Female

DRUGS (3)
  1. KLONOPIN [Suspect]
     Active Substance: CLONAZEPAM
     Indication: PRODUCT USED FOR UNKNOWN INDICATION
     Route: 065
  2. OCREVUS [Suspect]
     Active Substance: OCRELIZUMAB
     Dosage: 600 MG IV Q SIX MONTHS/24 WEEKS?DATE OF TREATMENT: 12/DEC/2017, 01/MAY/2018, 11/MAY/2018, 29/NOV/201
     Route: 042
  3. OCREVUS [Suspect]
     Active Substance: OCRELIZUMAB
     Indication: RELAPSING MULTIPLE SCLEROSIS
     Dosage: 300 MG IV EVERY TWO WEEKS
     Route: 042
     Dates: start: 20200817

REACTIONS (3)
  - Respiratory disorder [Not Recovered/Not Resolved]
  - Drug hypersensitivity [Unknown]
  - Urinary tract infection [Unknown]
